FAERS Safety Report 8167572-5 (Version None)
Quarter: 2012Q1

REPORT INFORMATION
  Report Type: 
  Country: None (occurrence: None)
  Receive Date: 20120227
  Receipt Date: 20120223
  Transmission Date: 20120608
  Serious: Yes (Hospitalization)
  Sender: FDA-Public Use
  Company Number: FR-ROCHE-1043004

PATIENT
  Sex: Male

DRUGS (5)
  1. RITUXAN [Suspect]
     Indication: PRODUCT USED FOR UNKNOWN INDICATION
     Route: 042
     Dates: start: 20120202, end: 20120202
  2. ZYRTEC [Concomitant]
     Route: 048
     Dates: start: 20120202, end: 20120202
  3. SOLU-MEDROL [Suspect]
     Indication: PRODUCT USED FOR UNKNOWN INDICATION
     Route: 042
     Dates: end: 20120202
  4. GALANTAMINE HYDROBROMIDE [Concomitant]
  5. ACETAMINOPHEN [Concomitant]
     Route: 048
     Dates: start: 20120202, end: 20120202

REACTIONS (3)
  - CONFUSIONAL STATE [None]
  - PYREXIA [None]
  - AGITATION [None]
